FAERS Safety Report 7307429-2 (Version None)
Quarter: 2011Q1

REPORT INFORMATION
  Report Type: 
  Country: None (occurrence: None)
  Receive Date: 20110209
  Receipt Date: 20110130
  Transmission Date: 20110831
  Serious: Yes (Death)
  Sender: FDA-Public Use
  Company Number: 026594

PATIENT
  Age: 73 Year
  Sex: Male

DRUGS (3)
  1. RIVASTIGMINE [Concomitant]
  2. MDAZOLAM [Concomitant]
  3. NEUPRO [Suspect]
     Dosage: (4 MG 1X/24 HOURS)

REACTIONS (1)
  - DEATH [None]
